FAERS Safety Report 6835642-7 (Version None)
Quarter: 2010Q3

REPORT INFORMATION
  Report Type: 
  Country: None (occurrence: None)
  Receive Date: 20100712
  Receipt Date: 20100712
  Transmission Date: 20110219
  Serious: Yes (Hospitalization)
  Sender: FDA-Public Use
  Company Number: None

PATIENT
  Age: 63 Year
  Sex: Female
  Weight: 74.8435 kg

DRUGS (1)
  1. ADENOSINE [Suspect]
     Indication: CARDIAC STRESS TEST
     Dates: start: 20100708, end: 20100708

REACTIONS (4)
  - ABDOMINAL PAIN [None]
  - BRONCHOSPASM [None]
  - CHEST PAIN [None]
  - HEADACHE [None]
